FAERS Safety Report 20485376 (Version 1)
Quarter: 2022Q1

REPORT INFORMATION
  Report Type: Spontaneous
  Country: TR (occurrence: TR)
  Receive Date: 20220217
  Receipt Date: 20220217
  Transmission Date: 20220423
  Serious: Yes (Death, Other)
  Sender: FDA-Public Use
  Company Number: TR-GILEAD-2022-0570034

PATIENT
  Sex: Male

DRUGS (2)
  1. BIKTARVY [Suspect]
     Active Substance: BICTEGRAVIR SODIUM\EMTRICITABINE\TENOFOVIR ALAFENAMIDE FUMARATE
     Indication: HIV infection
     Dosage: UNK
     Route: 065
     Dates: start: 202104
  2. FOSCARNET [Suspect]
     Active Substance: FOSCARNET
     Indication: HIV infection
     Route: 065

REACTIONS (1)
  - Opportunistic infection [Fatal]

NARRATIVE: CASE EVENT DATE: 20210101
